FAERS Safety Report 6306663-8 (Version None)
Quarter: 2009Q3

REPORT INFORMATION
  Report Type: 
  Country: None (occurrence: None)
  Receive Date: 20090811
  Receipt Date: 20090811
  Transmission Date: 20100115
  Serious: Yes (Hospitalization)
  Sender: FDA-Public Use
  Company Number: None

PATIENT
  Sex: Male
  Weight: 90.9 kg

DRUGS (1)
  1. EVEROLIMUS 10 MG [Suspect]
     Indication: METASTATIC RENAL CELL CARCINOMA
     Dosage: EVEROLIMUS 10 MG ONCE DAILY PO
     Route: 048
     Dates: start: 20090422, end: 20090719

REACTIONS (4)
  - ASTHENIA [None]
  - DYSPNOEA [None]
  - PNEUMONIA [None]
  - PYREXIA [None]
